FAERS Safety Report 21813064 (Version 1)
Quarter: 2023Q1

REPORT INFORMATION
  Report Type: Spontaneous
  Country: US (occurrence: None)
  Receive Date: 20230102
  Receipt Date: 20230102
  Transmission Date: 20230418
  Serious: Yes (Hospitalization)
  Sender: FDA-Public Use
  Company Number: None

PATIENT
  Age: 68 Year
  Sex: Male
  Weight: 72 kg

DRUGS (5)
  1. SUPREP BOWEL PREP [Suspect]
     Active Substance: MAGNESIUM SULFATE\POTASSIUM SULFATE\SODIUM SULFATE
     Indication: Bowel preparation
     Dates: start: 20220819, end: 20220819
  2. SUPREP BOWEL PREP [Suspect]
     Active Substance: MAGNESIUM SULFATE\POTASSIUM SULFATE\SODIUM SULFATE
     Indication: Colonoscopy
  3. ATORVASTATIN [Concomitant]
     Active Substance: ATORVASTATIN
  4. FLONASE [Concomitant]
     Active Substance: FLUTICASONE PROPIONATE
  5. Citrizine [Concomitant]

REACTIONS (5)
  - Tachycardia [None]
  - Atrial fibrillation [None]
  - Condition aggravated [None]
  - Discomfort [None]
  - Product use issue [None]

NARRATIVE: CASE EVENT DATE: 20220819
